FAERS Safety Report 7481914-5 (Version None)
Quarter: 2011Q2

REPORT INFORMATION
  Report Type: 
  Country: None (occurrence: None)
  Receive Date: 20110516
  Receipt Date: 20110429
  Transmission Date: 20111010
  Serious: No
  Sender: FDA-Public Use
  Company Number: US-B.I. PHARMACEUTICALS,INC./RIDGEFIELD-2011-BP-12161BP

PATIENT
  Age: 75 Year
  Sex: Female

DRUGS (15)
  1. ACETAMINOPHEN [Concomitant]
     Indication: ANALGESIC THERAPY
     Route: 048
  2. AMBIEN [Concomitant]
     Indication: INSOMNIA
     Route: 048
  3. ZYRTEC [Concomitant]
     Indication: MULTIPLE ALLERGIES
     Route: 048
  4. CENTRUM SILVER [Concomitant]
     Indication: PROPHYLAXIS
     Route: 048
  5. LISINOPRIL [Concomitant]
     Indication: HYPERTENSION
     Route: 048
  6. LOVAZA [Concomitant]
     Indication: PROPHYLAXIS
     Route: 048
  7. VITAMIN C [Concomitant]
     Indication: PROPHYLAXIS
     Route: 048
  8. VICODIN [Concomitant]
     Indication: FIBROMYALGIA
     Route: 048
  9. AMIODARONE HCL [Concomitant]
     Indication: ARRHYTHMIA
     Route: 048
  10. ZOCOR [Concomitant]
     Indication: BLOOD CHOLESTEROL INCREASED
     Route: 048
  11. PRADAXA [Suspect]
     Indication: ATRIAL FIBRILLATION
     Dosage: 300 MG
     Route: 048
     Dates: start: 20110101
  12. VITAMIN D [Concomitant]
     Indication: PROPHYLAXIS
     Route: 048
  13. PAXIL [Concomitant]
     Indication: DEPRESSION
     Route: 048
  14. COLACE [Concomitant]
     Indication: CONSTIPATION
     Route: 048
  15. MAGNESIUM [Concomitant]
     Indication: PROPHYLAXIS
     Route: 048

REACTIONS (1)
  - OESOPHAGEAL PAIN [None]
